FAERS Safety Report 10055863 (Version 1)
Quarter: 2014Q2

REPORT INFORMATION
  Report Type: Spontaneous
  Country: GB (occurrence: None)
  Receive Date: 20140401
  Receipt Date: 20140401
  Transmission Date: 20141212
  Serious: Yes (Hospitalization, Other)
  Sender: FDA-Public Use
  Company Number: GB-DEXPHARM-20140136

PATIENT
  Age: 51 Year
  Sex: Female

DRUGS (11)
  1. SECUKINUMAB [Suspect]
     Indication: PSORIASIS
     Route: 058
     Dates: start: 20121214, end: 20130205
  2. OMEPRAZOLE [Suspect]
     Indication: DYSPEPSIA
     Route: 048
  3. PARACETAMOL [Suspect]
     Indication: PAIN
     Route: 048
  4. PARACETAMOL [Suspect]
     Dosage: DOSAGE TEXT: ?500 MG X 16 TABLETS ?ORAL??DOSE: ?500 MG MILLIGRAM(S)?SEP.DOSAGES/INTERVAL ?16IN 1 TOTAL
     Route: 048
     Dates: start: 20130307, end: 20130307
  5. AMOXICILLIN [Suspect]
     Dosage: 250 MG X 20 TABLETS?DOSE:?250 MG MILLIGRAM(S)?SEP. DOSAGES / INTERVAL: ?20 IN 1 TOTAL
     Dates: start: 20130307, end: 20130307
  6. CITALOPRAM [Suspect]
     Dosage: 40 MG X 16 TABLETS ?ORAL??DOSE: ?40 MG MILLIGRAM (S)?SEP. DOSAGE/INTERVAL:?16 IN 1 TOTAL
     Route: 048
     Dates: start: 20130307, end: 20130307
  7. CITALOPRAM [Suspect]
     Indication: DEPRESSION
     Dosage: 40 MG, QD ?ORAL?DOSE: ?40 MG MILLGRAM(S)?SEP.DOSAGES/INTERVAL?1 IN 1 DAYS
     Route: 048
  8. LEVOTHYROXINE [Suspect]
     Dosage: 100 UG X 79?ORAL ?DOSE:?100 ?G MICROGRAM(S)?SEP. DOSAGES/ INTERVAL: ?79 IN 1 TOTAL
     Route: 048
     Dates: start: 20130307, end: 20130307
  9. LEVOTHYROXINE [Suspect]
     Indication: HYPOTHYROIDISM
     Dosage: 100 UG, QD? ?DOSE: 100 ?G MICROGRAM(S)?SEP. DOSAGES/ INTERVAL: ?1 IN 1 DAYS
     Route: 048
  10. NAPROXEN [Suspect]
     Indication: PAIN
     Dosage: 250 MG, BID?ORAL??DOSE:?250 MG MILLIGRAM(S)?SEP. DOSAGES/ INTERVAL: ?2 IN 1 DAYS
     Route: 048
     Dates: start: 20130307
  11. OMEPRAZOLE [Suspect]
     Dosage: 20 MG X 25 TABLETS?ORAL??DOSE:?20 MG MILLIGRAM(S) ?
     Route: 048
     Dates: start: 20130307, end: 20130307

REACTIONS (2)
  - Suicide attempt [None]
  - Overdose [None]
